FAERS Safety Report 9937301 (Version 2)
Quarter: 2014Q1

REPORT INFORMATION
  Report Type: Spontaneous
  Country: US (occurrence: US)
  Receive Date: 20140302
  Receipt Date: 20140302
  Transmission Date: 20141002
  Serious: Yes (Death)
  Sender: FDA-Public Use
  Company Number: US-GE HEALTHCARE MEDICAL DIAGNOSTICS-OSCN-PR-0712S-0500

PATIENT
  Age: 33 Year
  Sex: Female

DRUGS (7)
  1. OMNISCAN [Suspect]
     Indication: PRODUCT USED FOR UNKNOWN INDICATION
     Route: 042
     Dates: start: 20010910, end: 20010910
  2. OMNISCAN [Suspect]
     Route: 042
     Dates: start: 20010918, end: 20010918
  3. OMNISCAN [Suspect]
     Route: 042
     Dates: start: 20010927, end: 20010927
  4. OMNISCAN [Suspect]
     Route: 042
     Dates: start: 20011129, end: 20011129
  5. OMNISCAN [Suspect]
     Route: 042
     Dates: start: 20020227, end: 20020227
  6. MAGNEVIST [Suspect]
     Indication: PRODUCT USED FOR UNKNOWN INDICATION
     Route: 042
     Dates: start: 20010907, end: 20010907
  7. EPOGEN [Concomitant]

REACTIONS (1)
  - Nephrogenic systemic fibrosis [Fatal]
